FAERS Safety Report 5625121-7 (Version None)
Quarter: 2008Q1

REPORT INFORMATION
  Report Type: 
  Country: None (occurrence: None)
  Receive Date: 20080213
  Receipt Date: 20080211
  Transmission Date: 20080703
  Serious: Yes (Other)
  Sender: FDA-Public Use
  Company Number: DE-BOEHRINGER INGELHEIM GMBH, GERMANY-2008-DE-00861DE

PATIENT
  Sex: Female

DRUGS (3)
  1. MOBEC 15 MG TABLETTEN [Suspect]
     Route: 048
  2. IBUPROFEN [Suspect]
     Route: 048
  3. TETRAZEPAM [Suspect]
     Route: 048

REACTIONS (5)
  - DRUG ABUSE [None]
  - FATIGUE [None]
  - OVERDOSE [None]
  - SOMNOLENCE [None]
  - SUICIDE ATTEMPT [None]
